FAERS Safety Report 12544780 (Version 2)
Quarter: 2016Q3

REPORT INFORMATION
  Report Type: Spontaneous
  Country: GB (occurrence: GB)
  Receive Date: 20160711
  Receipt Date: 20160726
  Transmission Date: 20161109
  Serious: Yes (Other)
  Sender: FDA-Public Use
  Company Number: GB-AUROBINDO-AUR-APL-2016-08587

PATIENT
  Sex: Female

DRUGS (9)
  1. SEROXAT [Suspect]
     Active Substance: PAROXETINE HYDROCHLORIDE
     Indication: PRODUCT USED FOR UNKNOWN INDICATION
     Dosage: 20 MG, ONCE A DAY
     Route: 065
     Dates: start: 19970926
  2. ZOPICLONE [Concomitant]
     Active Substance: ZOPICLONE
     Indication: PRODUCT USED FOR UNKNOWN INDICATION
     Dosage: 3.75 MG, UNK
     Route: 065
     Dates: start: 20021223
  3. SEROXAT [Suspect]
     Active Substance: PAROXETINE HYDROCHLORIDE
     Dosage: 3 MG TO 3.5 MG DAILY
     Route: 065
     Dates: start: 20040607
  4. PAROXETINE HYDROCHLORIDE. [Suspect]
     Active Substance: PAROXETINE HYDROCHLORIDE
     Indication: PRODUCT USED FOR UNKNOWN INDICATION
     Dosage: UNK
     Route: 065
     Dates: start: 20021014, end: 20100427
  5. PAXIL [Suspect]
     Active Substance: PAROXETINE HYDROCHLORIDE
     Indication: PRODUCT USED FOR UNKNOWN INDICATION
     Dosage: 20 MG, QD
     Route: 065
     Dates: start: 19970926
  6. PAROXETINE TABLETS 20 MG [Suspect]
     Active Substance: PAROXETINE HYDROCHLORIDE
     Indication: DEPRESSION
     Dosage: 20 MG, 1D
     Route: 065
     Dates: start: 19970902
  7. PAROXETINE TABLETS 20 MG [Suspect]
     Active Substance: PAROXETINE HYDROCHLORIDE
     Indication: PANIC ATTACK
     Dosage: 20 MG, UNKNOWN
     Route: 065
  8. PAXIL [Suspect]
     Active Substance: PAROXETINE HYDROCHLORIDE
     Dosage: 3 MG TO 3.5 MG DAILY
     Route: 065
     Dates: start: 20040607
  9. DIAZEPAM. [Concomitant]
     Active Substance: DIAZEPAM
     Indication: PRODUCT USED FOR UNKNOWN INDICATION
     Dosage: UNK
     Route: 065
     Dates: start: 20030121

REACTIONS (25)
  - Confusional state [Unknown]
  - Fear [Unknown]
  - Loss of consciousness [Unknown]
  - Paraesthesia [Unknown]
  - Sleep disorder [Unknown]
  - Fear [Unknown]
  - Disturbance in attention [Unknown]
  - Depressed mood [Unknown]
  - Muscle spasms [Unknown]
  - Psychiatric symptom [Unknown]
  - Panic attack [Unknown]
  - Withdrawal syndrome [Unknown]
  - Hyperhidrosis [Unknown]
  - Diarrhoea [Unknown]
  - Nightmare [Unknown]
  - Memory impairment [Unknown]
  - Vision blurred [Unknown]
  - Anxiety [Unknown]
  - Depressed mood [Unknown]
  - Feeling hot [Unknown]
  - Dizziness [Unknown]
  - Nausea [Unknown]
  - Weight increased [Unknown]
  - Tremor [Unknown]
  - Agitation [Unknown]

NARRATIVE: CASE EVENT DATE: 2003
